FAERS Safety Report 5424539-5 (Version None)
Quarter: 2007Q3

REPORT INFORMATION
  Report Type: 
  Country: None (occurrence: None)
  Receive Date: 20070822
  Receipt Date: 20070808
  Transmission Date: 20080115
  Serious: Yes (Other)
  Sender: FDA-Public Use
  Company Number: 2007JP003752

PATIENT
  Age: 31 Year
  Sex: Male

DRUGS (4)
  1. PROGRAF [Suspect]
     Indication: RENAL TRANSPLANT
  2. MYCOPHENOLATE MOFETIL (MYCOPHENOLATE MOFETIL) FORMULATION [Concomitant]
  3. METHYLPREDNISOLONE [Concomitant]
  4. BASILIXIMAB (BASILIXIMAB) FORMULATION [Concomitant]

REACTIONS (7)
  - ADENOVIRUS INFECTION [None]
  - BLOOD CREATININE INCREASED [None]
  - CULTURE URINE POSITIVE [None]
  - GRANULOMA [None]
  - KIDNEY TRANSPLANT REJECTION [None]
  - PROSTATITIS [None]
  - TUBULOINTERSTITIAL NEPHRITIS [None]
